FAERS Safety Report 6716935-0 (Version None)
Quarter: 2010Q2

REPORT INFORMATION
  Report Type: 
  Country: None (occurrence: None)
  Receive Date: 20100506
  Receipt Date: 20100506
  Transmission Date: 20101027
  Serious: No
  Sender: FDA-Public Use
  Company Number: None

PATIENT
  Age: 84 Year
  Sex: Female
  Weight: 102.0593 kg

DRUGS (1)
  1. SINGULAIR [Suspect]
     Indication: HYPERSENSITIVITY
     Dosage: ONE 10 MG ONCE
     Dates: start: 20100114

REACTIONS (5)
  - ADVERSE EVENT [None]
  - EYE DISORDER [None]
  - OEDEMA PERIPHERAL [None]
  - PAIN [None]
  - SINUS HEADACHE [None]
